FAERS Safety Report 24689679 (Version 1)
Quarter: 2024Q4

REPORT INFORMATION
  Report Type: Spontaneous
  Country: GB (occurrence: GB)
  Receive Date: 20241203
  Receipt Date: 20241203
  Transmission Date: 20250115
  Serious: Yes (Other)
  Sender: AUROBINDO
  Company Number: GB-MHRA-MED-202411192322023120-PZDKG

PATIENT
  Age: 62 Year
  Sex: Female
  Weight: 83 kg

DRUGS (2)
  1. METOPROLOL [Suspect]
     Active Substance: METOPROLOL
     Indication: Adverse drug reaction
     Dosage: UNK
     Route: 065
     Dates: start: 2009, end: 2010
  2. METOPROLOL [Suspect]
     Active Substance: METOPROLOL
     Indication: Adverse drug reaction
     Dosage: UNK
     Route: 065
     Dates: start: 2009, end: 2009

REACTIONS (1)
  - Blister [Recovered/Resolved]
